FAERS Safety Report 8113969-9 (Version None)
Quarter: 2012Q1

REPORT INFORMATION
  Report Type: 
  Country: None (occurrence: None)
  Receive Date: 20120203
  Receipt Date: 20120126
  Transmission Date: 20120608
  Serious: Yes (Death)
  Sender: FDA-Public Use
  Company Number: IE-MEDIMMUNE-MEDI-0014624

PATIENT
  Sex: Male
  Weight: 10.5 kg

DRUGS (15)
  1. MIDAZOLAM [Concomitant]
  2. METOCLOPRAMIDE [Concomitant]
  3. SYNAGIS [Suspect]
     Route: 030
     Dates: start: 20111025, end: 20111025
  4. OMEPRAZOLE [Concomitant]
  5. IPRATROPIUM BROMIDE [Concomitant]
  6. AMBROXOL HYDROCHLORIDE [Concomitant]
  7. MOVIPREP [Concomitant]
  8. BUDESONIDE [Concomitant]
  9. FERROUS SULFATE TAB [Concomitant]
  10. LEVOTHYROXINE SODIUM [Concomitant]
  11. DOMPERIDONE [Concomitant]
  12. KAPSOVIT [Concomitant]
  13. PHENOBARBITAL TAB [Concomitant]
  14. EPILM [Concomitant]
  15. CARBOCISTEINE [Concomitant]

REACTIONS (1)
  - DEATH [None]
